FAERS Safety Report 15044818 (Version 1)
Quarter: 2018Q2

REPORT INFORMATION
  Report Type: Report from Study
  Country: US (occurrence: US)
  Receive Date: 20180621
  Receipt Date: 20180621
  Transmission Date: 20180711
  Serious: Yes (Other)
  Sender: FDA-Public Use
  Company Number: US-PFIZER INC-2018251808

PATIENT
  Sex: Female

DRUGS (4)
  1. CARBOPLATIN. [Suspect]
     Active Substance: CARBOPLATIN
     Indication: INFLAMMATORY CARCINOMA OF THE BREAST
     Dosage: 2.0 AUC, CYCLIC (4 CYCLES, 2.0 AUC, WEEKLY FOR 3 WEEKS)
     Route: 042
  2. PACLITAXEL. [Suspect]
     Active Substance: PACLITAXEL
     Indication: INFLAMMATORY CARCINOMA OF THE BREAST
     Dosage: 100 MG/M2 (5 MG/ML), CYCLIC (4 CYCLES, 5MG/ML INTRAVENOUS PIGGYBACK 100MG/M^2, WEEKLY FOR 3 WEEKS)
     Route: 042
  3. PANITUMUMAB [Suspect]
     Active Substance: PANITUMUMAB
     Indication: INFLAMMATORY CARCINOMA OF THE BREAST
     Dosage: 2.5 MG/KG, ON DAY 1
  4. PANITUMUMAB [Suspect]
     Active Substance: PANITUMUMAB
     Dosage: 2.5 MG/KG, CYCLIC (4 CYCLES,WEEKLY FOR 3WEEKS)

REACTIONS (2)
  - Myelodysplastic syndrome [Unknown]
  - Second primary malignancy [Unknown]
